FAERS Safety Report 18458111 (Version 1)
Quarter: 2020Q4

REPORT INFORMATION
  Report Type: Spontaneous
  Country: NO (occurrence: NO)
  Receive Date: 20201103
  Receipt Date: 20201103
  Transmission Date: 20210114
  Serious: Yes (Hospitalization)
  Sender: FDA-Public Use
  Company Number: NVSC2020NO287605

PATIENT
  Age: 76 Year
  Sex: Male

DRUGS (9)
  1. METOPROLOL SANDOZ [Concomitant]
     Active Substance: METOPROLOL
     Indication: ATRIAL FIBRILLATION
     Dosage: 100 MG, QD
     Route: 065
  2. ZOLPIDEM VITABALANS [Concomitant]
     Indication: INSOMNIA
     Dosage: 5 MG, QD (N05CF02 - ZOLPIDEM)
     Route: 065
  3. ELIQUIS [Concomitant]
     Active Substance: APIXABAN
     Indication: ATRIAL FIBRILLATION
     Dosage: 5 MG, Q12H
     Route: 065
  4. FURIX [Concomitant]
     Indication: OEDEMA
     Dosage: 30 MG, QD
     Route: 065
  5. VALSARTAN KRKA [Concomitant]
     Indication: HYPERTENSION
     Dosage: 320 MG, QD
     Route: 065
  6. LERKANIDIPIN ACTAVIS [Concomitant]
     Indication: HYPERTENSION
     Dosage: 10 MG, QD
     Route: 065
  7. VOTRIENT [Suspect]
     Active Substance: PAZOPANIB HYDROCHLORIDE
     Indication: METASTATIC RENAL CELL CARCINOMA
     Dosage: 400 MG, QD
     Route: 048
     Dates: start: 20200904, end: 20201006
  8. DUODART [Concomitant]
     Active Substance: DUTASTERIDE\TAMSULOSIN
     Indication: LOWER URINARY TRACT SYMPTOMS
     Dosage: 1 DF, QD
     Route: 065
  9. SIMVASTATIN SANDOZ [Concomitant]
     Active Substance: SIMVASTATIN
     Indication: HYPERCHOLESTEROLAEMIA
     Dosage: 40 MG, QD
     Route: 065
     Dates: start: 2000, end: 20201006

REACTIONS (6)
  - Hepatic failure [Recovering/Resolving]
  - Jaundice [Recovering/Resolving]
  - Liver injury [Recovering/Resolving]
  - Electrocardiogram QT prolonged [Recovering/Resolving]
  - Hepatitis [Recovering/Resolving]
  - Syncope [Recovering/Resolving]

NARRATIVE: CASE EVENT DATE: 20201006
